FAERS Safety Report 23592248 (Version 1)
Quarter: 2024Q1

REPORT INFORMATION
  Report Type: Spontaneous
  Country: US (occurrence: None)
  Receive Date: 20240304
  Receipt Date: 20240304
  Transmission Date: 20240410
  Serious: Yes (Hospitalization)
  Sender: FDA-Public Use
  Company Number: None

PATIENT
  Sex: Female

DRUGS (5)
  1. SILDENAFIL CITRATE [Suspect]
     Active Substance: SILDENAFIL CITRATE
     Indication: Pulmonary arterial hypertension
     Dosage: FREQUENCY : TWICE A DAY;?
     Route: 048
     Dates: start: 202212
  2. REMODULIN [Concomitant]
  3. TYVASO [Concomitant]
  4. OPSUMIT [Concomitant]
  5. DPI TITRAT KIT POW [Concomitant]

REACTIONS (7)
  - Pain in jaw [None]
  - Headache [None]
  - Chest pain [None]
  - Treatment noncompliance [None]
  - Hemiparesis [None]
  - Erythema [None]
  - Tenderness [None]
